FAERS Safety Report 8153806-X (Version None)
Quarter: 2012Q1

REPORT INFORMATION
  Report Type: 
  Country: None (occurrence: None)
  Receive Date: 20120221
  Receipt Date: 20120215
  Transmission Date: 20120608
  Serious: Yes (Hospitalization)
  Sender: FDA-Public Use
  Company Number: JP-GLAXOSMITHKLINE-B0782266A

PATIENT
  Sex: Female

DRUGS (1)
  1. FLUTICASONE PROPIONATE/SALMETEROL [Suspect]
     Indication: ASTHMA
     Route: 055

REACTIONS (2)
  - HOSPITALISATION [None]
  - NASAL DRYNESS [None]
